FAERS Safety Report 6505458-X (Version None)
Quarter: 2009Q4

REPORT INFORMATION
  Report Type: 
  Country: None (occurrence: None)
  Receive Date: 20091218
  Receipt Date: 20091204
  Transmission Date: 20100525
  Serious: Yes (Hospitalization)
  Sender: FDA-Public Use
  Company Number: DE-BAYER-200942625GPV

PATIENT
  Age: 17 Year
  Sex: Female

DRUGS (2)
  1. LEVONORGESTREL + ETHINYL ESTRADIOL [Suspect]
     Indication: DRUG USE FOR UNKNOWN INDICATION
     Dosage: 42 TABLETS
     Route: 048
     Dates: start: 20091203, end: 20091203
  2. PARACETAMOL [Suspect]
     Indication: SUICIDE ATTEMPT
     Dosage: 10 TABLETS
     Route: 048
     Dates: start: 20091203, end: 20091203

REACTIONS (4)
  - ABDOMINAL PAIN [None]
  - NAUSEA [None]
  - SUICIDE ATTEMPT [None]
  - VOMITING [None]
